FAERS Safety Report 18565266 (Version 1)
Quarter: 2020Q4

REPORT INFORMATION
  Report Type: Spontaneous
  Country: CY (occurrence: CY)
  Receive Date: 20201201
  Receipt Date: 20201201
  Transmission Date: 20210114
  Serious: Yes (Other)
  Sender: FDA-Public Use
  Company Number: CY-MYLANLABS-2020M1098216

PATIENT
  Age: 48 Year
  Sex: Female

DRUGS (2)
  1. TRIAMCINOLONE [Interacting]
     Active Substance: TRIAMCINOLONE
     Indication: PAIN
     Dosage: 40 MILLIGRAM, QOD, EVERY OTHER DAY; RECEIVED TWO DOSES
     Route: 030
  2. ATORVASTATIN [Suspect]
     Active Substance: ATORVASTATIN
     Indication: PRODUCT USED FOR UNKNOWN INDICATION
     Dosage: 10 MILLIGRAM, QD
     Route: 065

REACTIONS (3)
  - Drug interaction [Not Recovered/Not Resolved]
  - Cushing^s syndrome [Recovered/Resolved]
  - Adrenal insufficiency [Not Recovered/Not Resolved]
